FAERS Safety Report 15108212 (Version 1)
Quarter: 2018Q3

REPORT INFORMATION
  Report Type: Other
  Country: DE (occurrence: DE)
  Receive Date: 20180705
  Receipt Date: 20180705
  Transmission Date: 20181010
  Serious: No
  Sender: FDA-Public Use
  Company Number: DE-LUPIN PHARMACEUTICALS INC.-2018-00902

PATIENT
  Age: 63 Year
  Sex: Female
  Weight: 88 kg

DRUGS (2)
  1. SIMVASTATIN. [Suspect]
     Active Substance: SIMVASTATIN
     Indication: HYPERCHOLESTEROLAEMIA
     Dosage: 40 MG, UNK (5 MONTHS)
     Route: 048
     Dates: start: 20170201, end: 20170701
  2. ATORVASTATIN [Suspect]
     Active Substance: ATORVASTATIN
     Indication: HYPERCHOLESTEROLAEMIA
     Dosage: 10 MG, UNK (31 DAYS)
     Route: 048
     Dates: start: 20170801, end: 20170831

REACTIONS (2)
  - Transaminases increased [Unknown]
  - Myalgia [Unknown]
